FAERS Safety Report 23615906 (Version 2)
Quarter: 2025Q2

REPORT INFORMATION
  Report Type: Spontaneous
  Country: US (occurrence: US)
  Receive Date: 20240311
  Receipt Date: 20250415
  Transmission Date: 20250717
  Serious: Yes (Hospitalization, Other)
  Sender: Kenvue
  Company Number: US-JNJFOC-20230956764

PATIENT
  Age: 68 Year
  Sex: Male

DRUGS (2)
  1. NEOSPORIN [Suspect]
     Active Substance: BACITRACIN ZINC\NEOMYCIN SULFATE\POLYMYXIN B SULFATE
     Indication: Skin abrasion
     Route: 061
     Dates: start: 20230704
  2. NEOSPORIN [Suspect]
     Active Substance: BACITRACIN ZINC\NEOMYCIN SULFATE\POLYMYXIN B SULFATE
     Indication: Accidental exposure to product

REACTIONS (5)
  - Dysbiosis [Unknown]
  - Neuromyopathy [Not Recovered/Not Resolved]
  - Nervous system disorder [Recovered/Resolved]
  - Behaviour disorder [Unknown]
  - Accidental overdose [Unknown]

NARRATIVE: CASE EVENT DATE: 20230704
